FAERS Safety Report 4449636-2 (Version None)
Quarter: 2004Q3

REPORT INFORMATION
  Report Type: 
  Country: None (occurrence: None)
  Receive Date: 20040913
  Receipt Date: 20040913
  Transmission Date: 20050211
  Serious: Yes (Other)
  Sender: FDA-Public Use
  Company Number: None

PATIENT
  Age: 39 Year
  Sex: Male
  Weight: 68.0396 kg

DRUGS (6)
  1. ENALAPRIL MALEATE [Suspect]
     Indication: HYPERTENSION
     Dosage: PO TWICE DAILY
     Route: 048
     Dates: start: 20040915
  2. ALLOPURINOL [Concomitant]
  3. ULTRACET [Concomitant]
  4. ZANAFLEX [Concomitant]
  5. PAXIL CR [Concomitant]
  6. ACIPHEX [Concomitant]

REACTIONS (4)
  - GASTROENTERITIS [None]
  - NAUSEA [None]
  - PHARMACEUTICAL PRODUCT COMPLAINT [None]
  - VOMITING [None]
